FAERS Safety Report 6666496-X (Version None)
Quarter: 2010Q2

REPORT INFORMATION
  Report Type: 
  Country: None (occurrence: None)
  Receive Date: 20100402
  Receipt Date: 20100330
  Transmission Date: 20101027
  Serious: Yes (Hospitalization)
  Sender: FDA-Public Use
  Company Number: GB-AMGEN-KDC396150

PATIENT
  Sex: Male

DRUGS (20)
  1. VECTIBIX [Suspect]
     Indication: GASTROOESOPHAGEAL CANCER
     Dates: start: 20100128
  2. EPIRUBICIN [Suspect]
     Dates: start: 20100128
  3. OXALIPLATIN [Suspect]
     Dates: start: 20100128
  4. CAPECITABINE [Suspect]
     Dates: start: 20100128
  5. MACROGOL [Concomitant]
     Dates: start: 20100111
  6. LANSOPRAZOLE [Concomitant]
  7. CLINDAMYCIN [Concomitant]
     Route: 061
     Dates: start: 20100218
  8. BETAMETHASONE VALERATE [Concomitant]
     Dates: start: 20100218
  9. MOVICOL [Concomitant]
     Dates: start: 20100218
  10. ONDANSETRON [Concomitant]
     Dates: start: 20100129
  11. DEXAMETHASONE [Concomitant]
     Dates: start: 20100129
  12. METOCLOPRAMIDE [Concomitant]
     Dates: start: 20100129
  13. TETRACYCLINE [Concomitant]
     Dates: start: 20100211
  14. LISINOPRIL [Concomitant]
     Dates: start: 20050101
  15. OMEPRAZOLE [Concomitant]
     Dates: start: 20050101
  16. PIOGLITAZONE [Concomitant]
     Dates: start: 20050101
  17. METFORMIN (GLUCOPHAGE) [Concomitant]
     Dates: start: 20050101
  18. DOMPERIDONE [Concomitant]
     Dates: start: 20091201
  19. TPN [Concomitant]
     Dates: start: 20100127
  20. LACTULOSE [Concomitant]
     Dates: start: 20100127

REACTIONS (2)
  - ISCHAEMIA [None]
  - PERIPHERAL ISCHAEMIA [None]
